FAERS Safety Report 9196741 (Version 2)
Quarter: 2013Q2

REPORT INFORMATION
  Report Type: Spontaneous
  Country: US (occurrence: US)
  Receive Date: 20130328
  Receipt Date: 20130415
  Transmission Date: 20140414
  Serious: Yes (Death, Other)
  Sender: FDA-Public Use
  Company Number: US-CELGENEUS-163-21880-13034085

PATIENT
  Age: 68 Year
  Sex: Male
  Weight: 76 kg

DRUGS (1)
  1. REVLIMID [Suspect]
     Indication: MYELODYSPLASTIC SYNDROME
     Dosage: 5 MILLIGRAM
     Route: 048
     Dates: start: 20130201, end: 20130310

REACTIONS (4)
  - Metastatic neoplasm [Not Recovered/Not Resolved]
  - Cardiac failure congestive [Fatal]
  - Myelodysplastic syndrome [Fatal]
  - Renal failure [Fatal]
